FAERS Safety Report 20429558 (Version 1)
Quarter: 2022Q1

REPORT INFORMATION
  Report Type: Report from Study
  Country: FR (occurrence: FR)
  Receive Date: 20220204
  Receipt Date: 20220204
  Transmission Date: 20220423
  Serious: Yes (Other)
  Sender: FDA-Public Use
  Company Number: FR-SERVIER-S19011591

PATIENT

DRUGS (8)
  1. ONCASPAR [Suspect]
     Active Substance: PEGASPARGASE
     Indication: Acute lymphocytic leukaemia
     Dosage: 2400 IU, ON D12, D26
     Route: 042
     Dates: start: 20170921, end: 20171005
  2. TN UNSPECIFIED [Concomitant]
     Indication: Acute lymphocytic leukaemia
     Dosage: 60 MG , FROM D8 TO D28
     Route: 042
     Dates: start: 20170917, end: 20171007
  3. TN UNSPECIFIED [Concomitant]
     Indication: Acute lymphocytic leukaemia
     Dosage: 1.5 MG, ON D8, D15, D22, D29
     Route: 042
     Dates: start: 20170917, end: 20171009
  4. TN UNSPECIFIED [Concomitant]
     Indication: Acute lymphocytic leukaemia
     Dosage: 39 MG, ON D8, D15, D22, D29
     Route: 042
     Dates: start: 20170917, end: 20171008
  5. TN UNSPECIFIED [Concomitant]
     Indication: Acute lymphocytic leukaemia
     Dosage: 980 MG, ON D9
     Route: 042
     Dates: start: 20170918, end: 20170918
  6. TN UNSPECIFIED [Concomitant]
     Indication: Acute lymphocytic leukaemia
     Dosage: 12MG, ON D9, D13
     Route: 037
     Dates: start: 20170922, end: 20170926
  7. TN UNSPECIFIED [Concomitant]
     Indication: Acute lymphocytic leukaemia
     Dosage: 30 MG, ON D9, D13, D24
     Route: 037
     Dates: start: 20170926, end: 20171007
  8. TN UNSPECIFIED [Concomitant]
     Indication: Acute lymphocytic leukaemia
     Dosage: 15 MG, ON D9, D13, D24
     Route: 037
     Dates: start: 20170922, end: 20171007

REACTIONS (1)
  - Gamma-glutamyltransferase increased [Recovered/Resolved]

NARRATIVE: CASE EVENT DATE: 20171009
